FAERS Safety Report 17909856 (Version 2)
Quarter: 2020Q2

REPORT INFORMATION
  Report Type: Spontaneous
  Country: DE (occurrence: DE)
  Receive Date: 20200617
  Receipt Date: 20200624
  Transmission Date: 20200714
  Serious: Yes (Hospitalization)
  Sender: FDA-Public Use
  Company Number: DE-ANIPHARMA-2020-DE-000125

PATIENT
  Age: 85 Year
  Sex: Female
  Weight: 80 kg

DRUGS (6)
  1. LEVOTHYROXINE SODIUM. [Concomitant]
     Active Substance: LEVOTHYROXINE SODIUM
     Dosage: .1 MG QD
     Route: 048
  2. TORASEMIDE [Suspect]
     Active Substance: TORSEMIDE
     Dosage: 5 MG QD
     Route: 048
  3. SPIRONOLACTONE. [Suspect]
     Active Substance: SPIRONOLACTONE
     Dosage: 25 MG QD
     Route: 048
  4. HYDROCHLOROTHIAZID [Suspect]
     Active Substance: HYDROCHLOROTHIAZIDE
     Dosage: 25 MG QD
     Route: 048
  5. CANDESARTAN CILEXETIL. [Suspect]
     Active Substance: CANDESARTAN CILEXETIL
     Indication: PRODUCT USED FOR UNKNOWN INDICATION
     Dosage: 32 MG QD
     Route: 048
  6. METOPROLOL. [Concomitant]
     Active Substance: METOPROLOL
     Dosage: 47.5 MG QD
     Route: 048

REACTIONS (6)
  - Product prescribing error [Unknown]
  - Decreased appetite [Unknown]
  - Dyspnoea [Unknown]
  - Weight decreased [Unknown]
  - Renal impairment [Unknown]
  - Product monitoring error [Unknown]
